FAERS Safety Report 7999491-9 (Version None)
Quarter: 2011Q4

REPORT INFORMATION
  Report Type: 
  Country: None (occurrence: None)
  Receive Date: 20111221
  Receipt Date: 20111218
  Transmission Date: 20120403
  Serious: No
  Sender: FDA-Public Use
  Company Number: US-PFIZER INC-2011307043

PATIENT
  Sex: Male
  Weight: 127 kg

DRUGS (9)
  1. DEXTROAMPHETAMINE [Concomitant]
     Indication: ATTENTION DEFICIT/HYPERACTIVITY DISORDER
     Dosage: 100 MG, 2X/DAY
  2. BUSPIRONE HYDROCHLORIDE [Concomitant]
     Indication: ANXIETY
  3. BISOPROLOL FUMARATE [Concomitant]
     Indication: HYPERTENSION
     Dosage: 5 MG, 1X/DAY
  4. AMLODIPINE BESILATE [Concomitant]
     Indication: HYPERTENSION
     Dosage: 10 MG, 1X/DAY
  5. OMEPRAZOLE [Concomitant]
     Indication: GASTRIC DISORDER
     Dosage: 20 MG, 1X/DAY
  6. PRISTIQ [Suspect]
     Indication: DEPRESSION
     Dosage: 50 MG, 1X/DAY
     Dates: start: 20111101
  7. HYDROCHLOROTHIAZIDE [Concomitant]
     Indication: HYPERTENSION
     Dosage: 25 MG, 1X/DAY
  8. DIOVAN [Concomitant]
     Indication: HYPERTENSION
     Dosage: 80 MG, 1X/DAY
  9. BUSPIRONE HYDROCHLORIDE [Concomitant]
     Indication: DEPRESSION
     Dosage: 30 MG, 4X/DAY

REACTIONS (8)
  - BLOOD PRESSURE INCREASED [None]
  - ABDOMINAL DISTENSION [None]
  - SWELLING [None]
  - GASTROOESOPHAGEAL REFLUX DISEASE [None]
  - URTICARIA [None]
  - HYPERSENSITIVITY [None]
  - BURNING SENSATION [None]
  - ERUCTATION [None]
